FAERS Safety Report 9853766 (Version 1)
Quarter: 2014Q1

REPORT INFORMATION
  Report Type: Spontaneous
  Country: US (occurrence: US)
  Receive Date: 20140129
  Receipt Date: 20140129
  Transmission Date: 20141002
  Serious: No
  Sender: FDA-Public Use
  Company Number: US-GLAXOSMITHKLINE-A1026519A

PATIENT
  Sex: Male

DRUGS (2)
  1. WELLBUTRIN [Suspect]
     Indication: SMOKING CESSATION THERAPY
     Route: 065
  2. CHANTIX [Suspect]
     Indication: SMOKING CESSATION THERAPY
     Route: 065

REACTIONS (2)
  - Adverse event [Unknown]
  - Drug ineffective [Unknown]
